FAERS Safety Report 7984970-0 (Version None)
Quarter: 2011Q4

REPORT INFORMATION
  Report Type: 
  Country: None (occurrence: None)
  Receive Date: 20111216
  Receipt Date: 20111212
  Transmission Date: 20120403
  Serious: Yes (Death)
  Sender: FDA-Public Use
  Company Number: ES-SANOFI-AVENTIS-2011SA081745

PATIENT
  Age: 85 Year
  Sex: Female

DRUGS (6)
  1. PANTOPRAZOLE [Concomitant]
     Dates: start: 20110731
  2. SINTROM [Interacting]
     Route: 048
     Dates: start: 20100901, end: 20110808
  3. ATORVASTATIN [Concomitant]
     Indication: DYSLIPIDAEMIA
     Route: 048
     Dates: start: 20110731
  4. AMIODARONE HCL [Concomitant]
     Dates: start: 20100901
  5. ENOXAPARIN SODIUM [Suspect]
     Indication: CEREBRAL INFARCTION
     Route: 058
     Dates: start: 20110731, end: 20110731
  6. PIPERACILLIN AND TAZOBACTAM [Interacting]
     Indication: RESPIRATORY TRACT INFECTION
     Route: 042
     Dates: start: 20110731

REACTIONS (2)
  - ANAEMIA [None]
  - HYPOCOAGULABLE STATE [None]
